FAERS Safety Report 8134755-X (Version None)
Quarter: 2012Q1

REPORT INFORMATION
  Report Type: 
  Country: None (occurrence: None)
  Receive Date: 20120209
  Receipt Date: 20120127
  Transmission Date: 20120608
  Serious: Yes (Hospitalization)
  Sender: FDA-Public Use
  Company Number: 1000025654

PATIENT
  Age: 83 Year
  Sex: Male
  Weight: 45 kg

DRUGS (8)
  1. MEMANTINE HYDROCHLORIDE [Suspect]
     Indication: DEMENTIA ALZHEIMER'S TYPE
     Dosage: 5;10;15 MG 95 MG, 1 IN 1 D, ORAL
     Route: 048
     Dates: start: 20110901, end: 20110901
  2. MEMANTINE HYDROCHLORIDE [Suspect]
     Indication: DEMENTIA ALZHEIMER'S TYPE
     Dosage: 5;10;15 MG 95 MG, 1 IN 1 D, ORAL
     Route: 048
     Dates: start: 20110906, end: 20110901
  3. MEMANTINE HYDROCHLORIDE [Suspect]
     Indication: DEMENTIA ALZHEIMER'S TYPE
     Dosage: 5;10;15 MG 95 MG, 1 IN 1 D, ORAL
     Route: 048
     Dates: start: 20110901, end: 20110926
  4. MEMANTINE HYDROCHLORIDE [Suspect]
     Indication: DEMENTIA ALZHEIMER'S TYPE
     Dosage: 20 MG (20 MG, 1 IN 1 D), ORAL
     Route: 048
     Dates: start: 20110927, end: 20111105
  5. VITANEURIN (FURSULTIAMINE HYDROCHLORIDE) [Concomitant]
  6. FERROMIA (SODIUM FERROUS CITRATE) [Concomitant]
  7. ASPIRIN [Concomitant]
  8. ARICEPT [Concomitant]

REACTIONS (3)
  - DECREASED APPETITE [None]
  - INTESTINAL OBSTRUCTION [None]
  - WEIGHT DECREASED [None]
